FAERS Safety Report 9815250 (Version 1)
Quarter: 2014Q1

REPORT INFORMATION
  Report Type: Report from Study
  Country: US (occurrence: US)
  Receive Date: 20140114
  Receipt Date: 20140114
  Transmission Date: 20141002
  Serious: Yes (Hospitalization)
  Sender: FDA-Public Use
  Company Number: US-ROCHE-1328727

PATIENT
  Age: 62 Year
  Sex: Female
  Weight: 47.7 kg

DRUGS (3)
  1. RITUXIMAB [Suspect]
     Indication: B-CELL LYMPHOMA
     Dosage: DATE OF LAST DOSE PRIOR TO SAE ONSET : 27/AUG/2013.
     Route: 042
     Dates: start: 20130813, end: 20130827
  2. LENALIDOMIDE [Suspect]
     Indication: B-CELL LYMPHOMA
     Route: 065
     Dates: start: 20130813, end: 20130828
  3. IDELALISIB [Suspect]
     Indication: B-CELL LYMPHOMA
     Route: 065
     Dates: start: 20130813, end: 20130828

REACTIONS (3)
  - Cerebrovascular accident [Recovered/Resolved]
  - Sepsis [Recovered/Resolved]
  - Febrile neutropenia [Recovered/Resolved]
